FAERS Safety Report 7705363-7 (Version None)
Quarter: 2011Q3

REPORT INFORMATION
  Report Type: 
  Country: None (occurrence: None)
  Receive Date: 20110818
  Receipt Date: 20110805
  Transmission Date: 20111222
  Serious: Yes (Hospitalization, Other)
  Sender: FDA-Public Use
  Company Number: 2011P1008188

PATIENT
  Age: 63 Year
  Sex: Female
  Weight: 48.9885 kg

DRUGS (3)
  1. FENTANYL [Suspect]
     Indication: INTERVERTEBRAL DISC DEGENERATION
     Dosage: 1 PATCH;Q72H;TDER
     Route: 062
     Dates: start: 20100101
  2. FENTANYL [Suspect]
     Indication: NECK PAIN
     Dosage: 1 PATCH;Q72H;TDER
     Route: 062
     Dates: start: 20100101
  3. FENTANYL [Suspect]
     Indication: KYPHOSIS
     Dosage: 1 PATCH;Q72H;TDER
     Route: 062
     Dates: start: 20100101

REACTIONS (4)
  - DRUG INEFFECTIVE [None]
  - PAIN [None]
  - APPLICATION SITE REACTION [None]
  - DERMATITIS CONTACT [None]
